FAERS Safety Report 4757038-4 (Version None)
Quarter: 2005Q3

REPORT INFORMATION
  Report Type: 
  Country: None (occurrence: None)
  Receive Date: 20050829
  Receipt Date: 20050829
  Transmission Date: 20060218
  Serious: No
  Sender: FDA-Public Use
  Company Number: None

PATIENT
  Age: 44 Year
  Sex: Female
  Weight: 99.7913 kg

DRUGS (1)
  1. LEVAQUIN [Suspect]
     Indication: OVARIAN CYST
     Dosage: ONE TABLET A DAY FOR 7 DAYS CUTANEOUS
     Route: 003
     Dates: start: 20050814, end: 20050820

REACTIONS (11)
  - ARTHRALGIA [None]
  - BALANCE DISORDER [None]
  - BLISTER [None]
  - CONTUSION [None]
  - DIFFICULTY IN WALKING [None]
  - DIZZINESS [None]
  - IMPAIRED DRIVING ABILITY [None]
  - MOOD ALTERED [None]
  - OEDEMA PERIPHERAL [None]
  - PAIN OF SKIN [None]
  - SUNBURN [None]
